FAERS Safety Report 9168098 (Version 2)
Quarter: 2013Q3

REPORT INFORMATION
  Report Type: Spontaneous
  Country: US (occurrence: None)
  Receive Date: 20130225
  Receipt Date: 20130715
  Transmission Date: 20140515
  Serious: Yes (Other)
  Sender: FDA-Public Use
  Company Number: 2012031770

PATIENT
  Sex: Female
  Weight: 38.56 kg

DRUGS (15)
  1. PRIVIGEN (IMMUNE GLOBULIN INTRAVENOUS (HUMAN) 10% LIQUID) [Suspect]
     Indication: IMMUNODEFICIENCY COMMON VARIABLE
     Dosage: (START 22 ML/HR FOR 15 MIN,THEN 67 ML/HR/15 MIN,THEN 111 ML/HRX15MIN,178 ML.HR/15MIN, MAX 223 ML/HR)
     Route: 042
     Dates: start: 20101006
  2. OXYGEN (OXYGEN) [Concomitant]
  3. HEPARIN (HEPARIN) [Concomitant]
  4. SINGULAIR [Concomitant]
  5. XANAX (ALPRAZOLAM) [Concomitant]
  6. PREDNISONE (PREDNISONE) [Concomitant]
  7. DUONAB (COMBIVENT /01261001/) [Concomitant]
  8. PRILOSEC [Concomitant]
  9. SODIUM CHLORIDE [Concomitant]
  10. STERILE WATER (WATER) [Concomitant]
  11. HYDROCORITSONE (HYDROCORTISONE) [Concomitant]
  12. EPI-PEN (EPINEPHRINE HYDROCHLORIDE) [Concomitant]
  13. NORMAL SALINE (SODIUM CHLORIDE) [Concomitant]
  14. TYLENOL (PARACETAMOL) [Concomitant]
  15. DEXILANT (ALL OTHER THERAPEUTIC PRODUCTS) [Concomitant]

REACTIONS (5)
  - Headache [None]
  - Nausea [None]
  - Vomiting [None]
  - Anxiety [None]
  - Weight decreased [None]
